FAERS Safety Report 19751180 (Version 4)
Quarter: 2021Q4

REPORT INFORMATION
  Report Type: Report from Study
  Country: US (occurrence: US)
  Receive Date: 20210826
  Receipt Date: 20211013
  Transmission Date: 20220303
  Serious: No
  Sender: FDA-Public Use
  Company Number: NVSC2021US191808

PATIENT
  Sex: Female

DRUGS (2)
  1. ENTRESTO [Suspect]
     Active Substance: SACUBITRIL\VALSARTAN
     Indication: Product used for unknown indication
     Dosage: UNK UNK, BID
     Route: 048
  2. ENTRESTO [Suspect]
     Active Substance: SACUBITRIL\VALSARTAN
     Route: 048

REACTIONS (11)
  - Oropharyngeal pain [Unknown]
  - Ear infection [Unknown]
  - Concomitant disease progression [Unknown]
  - Therapeutic response unexpected [Unknown]
  - Throat irritation [Unknown]
  - Fatigue [Unknown]
  - Gastrooesophageal reflux disease [Unknown]
  - Incontinence [Unknown]
  - Chest discomfort [Unknown]
  - Dyspnoea [Unknown]
  - Diarrhoea [Unknown]
